FAERS Safety Report 13974917 (Version 1)
Quarter: 2017Q3

REPORT INFORMATION
  Report Type: Spontaneous
  Country: US (occurrence: US)
  Receive Date: 20170915
  Receipt Date: 20170915
  Transmission Date: 20171128
  Serious: Yes (Other)
  Sender: FDA-Public Use
  Company Number: US-AMGEN-USASP2017137296

PATIENT
  Age: 59 Year
  Sex: Female
  Weight: 57.14 kg

DRUGS (5)
  1. ZARXIO [Suspect]
     Active Substance: FILGRASTIM-SNDZ
     Indication: WHITE BLOOD CELL COUNT DECREASED
     Dosage: 480 MCG/0.8 ML, QD (ALTERNATE THIGHS) USUALLY AFTER CHEMO FOR 4 DAYS BUT IT ALTERNATES
     Route: 065
     Dates: start: 2016
  2. PROCRIT [Concomitant]
     Active Substance: ERYTHROPOIETIN
     Indication: RED BLOOD CELL COUNT DECREASED
     Dosage: UNK UNK, AS NECESSARY (WHEN RED CELLS ARE LOW)
  3. XGEVA [Suspect]
     Active Substance: DENOSUMAB
     Indication: METASTASES TO BONE
     Dosage: UNK, QMO
     Route: 065
  4. NAVELBINE [Concomitant]
     Active Substance: VINORELBINE TARTRATE
     Indication: NEOPLASM MALIGNANT
     Dosage: UNK UNK, QWK (ON WEDNESDAY VIA PORT)
     Dates: start: 2013
  5. NEUPOGEN [Suspect]
     Active Substance: FILGRASTIM
     Indication: WHITE BLOOD CELL COUNT DECREASED
     Dosage: UNK UNK, AS NECESSARY
     Route: 065

REACTIONS (4)
  - Nasal polyps [Recovered/Resolved]
  - Laryngitis [Not Recovered/Not Resolved]
  - Jaw disorder [Recovered/Resolved]
  - Dyspnoea [Unknown]

NARRATIVE: CASE EVENT DATE: 201611
